FAERS Safety Report 23885860 (Version 1)
Quarter: 2024Q2

REPORT INFORMATION
  Report Type: Spontaneous
  Country: RU (occurrence: RU)
  Receive Date: 20240522
  Receipt Date: 20240522
  Transmission Date: 20240715
  Serious: Yes (Other)
  Sender: FDA-Public Use
  Company Number: RU-AMAROX PHARMA-HET2024RU01503

PATIENT
  Age: 17 Year
  Sex: Female
  Weight: 47 kg

DRUGS (3)
  1. FINGOLIMOD [Suspect]
     Active Substance: FINGOLIMOD
     Indication: Multiple sclerosis
     Dosage: QD
     Route: 048
     Dates: start: 20231206, end: 20240504
  2. FLUVOXAMINE [Concomitant]
     Active Substance: FLUVOXAMINE
     Indication: Panic disorder
     Dosage: 37.5 MILLIGRAM PER DAY
     Route: 048
     Dates: start: 20240506
  3. VITAMINS [Suspect]
     Active Substance: VITAMINS
     Indication: Product used for unknown indication
     Dosage: INTRAVENOUSLY DROP INFUSION
     Route: 042

REACTIONS (2)
  - Haematotoxicity [Recovering/Resolving]
  - Lymphopenia [Recovering/Resolving]

NARRATIVE: CASE EVENT DATE: 20240423
